FAERS Safety Report 6919070-1 (Version None)
Quarter: 2010Q3

REPORT INFORMATION
  Report Type: 
  Country: None (occurrence: None)
  Receive Date: 20100811
  Receipt Date: 20100729
  Transmission Date: 20110219
  Serious: Yes (Other)
  Sender: FDA-Public Use
  Company Number: PHHY2010US49756

PATIENT
  Sex: Female

DRUGS (5)
  1. TEGRETOL [Suspect]
     Dosage: UNK
  2. METFORMIN HCL [Suspect]
     Indication: DIABETES MELLITUS
     Dosage: UNK
  3. LANTUS [Suspect]
     Indication: TYPE 2 DIABETES MELLITUS
     Dosage: 30 U, QD
     Dates: start: 20040101
  4. LANTUS [Suspect]
     Dosage: 40 U, QD
  5. OPTICLIK BLUE [Suspect]
     Dosage: UNK
     Dates: start: 20040101

REACTIONS (5)
  - CEREBROVASCULAR ACCIDENT [None]
  - CONVULSION [None]
  - HEADACHE [None]
  - RENAL FUNCTION TEST ABNORMAL [None]
  - VISION BLURRED [None]
